FAERS Safety Report 4480143-7 (Version None)
Quarter: 2004Q4

REPORT INFORMATION
  Report Type: 
  Country: None (occurrence: None)
  Receive Date: 20041020
  Receipt Date: 20041012
  Transmission Date: 20050328
  Serious: Yes (Life-Threatening, Hospitalization, Disabling)
  Sender: FDA-Public Use
  Company Number: US-MERCK-0410USA01726

PATIENT
  Sex: Female

DRUGS (9)
  1. ZOCOR [Suspect]
     Indication: BLOOD CHOLESTEROL INCREASED
     Route: 048
     Dates: start: 20040601, end: 20040624
  2. ZETIA [Concomitant]
     Route: 065
  3. THYROID [Concomitant]
     Route: 065
  4. VASOTEC [Concomitant]
     Route: 065
  5. CALTRATE [Concomitant]
     Route: 065
  6. NORVASC [Concomitant]
     Route: 065
  7. PAXIL [Concomitant]
     Route: 065
  8. NEXIUM [Concomitant]
     Route: 065
  9. LINSEED OIL [Concomitant]
     Route: 065

REACTIONS (5)
  - ABASIA [None]
  - DYSPNOEA [None]
  - MUSCULAR WEAKNESS [None]
  - TREMOR [None]
  - VOCAL CORD PARALYSIS [None]
